FAERS Safety Report 6152829-X (Version None)
Quarter: 2009Q2

REPORT INFORMATION
  Report Type: 
  Country: None (occurrence: None)
  Receive Date: 20090413
  Receipt Date: 20090331
  Transmission Date: 20091009
  Serious: Yes (Other)
  Sender: FDA-Public Use
  Company Number: CA-PFIZER INC-2009191828

PATIENT

DRUGS (11)
  1. CHAMPIX [Suspect]
     Dosage: UNK
     Dates: start: 20090328, end: 20090328
  2. CELEBREX [Concomitant]
  3. LIPITOR [Concomitant]
  4. LYRICA [Concomitant]
  5. METFORMIN HYDROCHLORIDE [Concomitant]
  6. AMIODARONE [Concomitant]
     Dosage: 300 MG, UNK
  7. WARFARIN SODIUM [Concomitant]
  8. PARIET [Concomitant]
  9. COLACE [Concomitant]
  10. EFFEXOR [Concomitant]
  11. ALL OTHER THERAPEUTIC PRODUCTS [Concomitant]

REACTIONS (1)
  - HAEMOPTYSIS [None]
